FAERS Safety Report 9345580 (Version 1)
Quarter: 2013Q2

REPORT INFORMATION
  Report Type: Spontaneous
  Country: CA (occurrence: CA)
  Receive Date: 20130613
  Receipt Date: 20130613
  Transmission Date: 20140414
  Serious: Yes (Other)
  Sender: FDA-Public Use
  Company Number: CA-SHIRE-ALL1-2013-03856

PATIENT
  Age: 16 Year
  Sex: Female

DRUGS (1)
  1. VYVANSE [Suspect]
     Indication: PRODUCT USED FOR UNKNOWN INDICATION
     Dosage: 140 MG, 1X/DAY:QD
     Route: 048

REACTIONS (10)
  - Suicidal ideation [Unknown]
  - Depression [Unknown]
  - Mood swings [Unknown]
  - Prescribed overdose [Not Recovered/Not Resolved]
  - Anxiety [Unknown]
  - Aggression [Unknown]
  - Irritability [Unknown]
  - Dry mouth [Unknown]
  - Vomiting [Unknown]
  - Decreased appetite [Unknown]
